FAERS Safety Report 26073443 (Version 2)
Quarter: 2025Q4

REPORT INFORMATION
  Report Type: Spontaneous
  Country: JP (occurrence: JP)
  Receive Date: 20251121
  Receipt Date: 20251204
  Transmission Date: 20260118
  Serious: Yes (Life-Threatening, Hospitalization, Other)
  Sender: ALKEM
  Company Number: None

PATIENT
  Age: 51 Year
  Sex: Male

DRUGS (3)
  1. MYCOPHENOLATE MOFETIL [Suspect]
     Active Substance: MYCOPHENOLATE MOFETIL
     Indication: Immunosuppressant drug therapy
     Dosage: 2000 MILLIGRAM, OD
     Route: 065
  2. TACROLIMUS [Suspect]
     Active Substance: TACROLIMUS
     Indication: Immunosuppressant drug therapy
     Dosage: UNK
     Route: 065
  3. CLOSTRIDIUM BUTYRICUM MIYAIRI 588 STRAIN [Suspect]
     Active Substance: CLOSTRIDIUM BUTYRICUM MIYAIRI 588 STRAIN
     Indication: Immunosuppressant drug therapy
     Dosage: UNK
     Route: 048

REACTIONS (6)
  - Cerebral artery embolism [Recovering/Resolving]
  - Air embolism [Recovering/Resolving]
  - Gas gangrene [Recovering/Resolving]
  - Septic shock [Recovering/Resolving]
  - Clostridium bacteraemia [Recovering/Resolving]
  - Gastritis bacterial [Recovering/Resolving]
